FAERS Safety Report 5367074-5 (Version None)
Quarter: 2007Q2

REPORT INFORMATION
  Report Type: 
  Country: None (occurrence: None)
  Receive Date: 20070622
  Receipt Date: 20070620
  Transmission Date: 20071010
  Serious: Yes (Hospitalization)
  Sender: FDA-Public Use
  Company Number: B0475914A

PATIENT
  Age: 55 Year
  Sex: Male

DRUGS (1)
  1. ZANTAC [Suspect]
     Dosage: 100MG PER DAY
     Route: 042
     Dates: start: 20070517, end: 20070521

REACTIONS (1)
  - BLOOD BILIRUBIN INCREASED [None]
